FAERS Safety Report 8758360 (Version 5)
Quarter: 2012Q4

REPORT INFORMATION
  Report Type: 
  Country: AR (occurrence: AR)
  Receive Date: 20120829
  Receipt Date: 20121025
  Transmission Date: 20130627
  Serious: Yes (Other)
  Sender: FDA-Public Use
  Company Number: AR-AMGEN-ARGSP2012053531

PATIENT
  Age: 57 Year
  Sex: Female

DRUGS (8)
  1. ENBREL [Suspect]
     Indication: RHEUMATOID ARTHRITIS
     Dosage: 50 mg, weekly
     Route: 058
     Dates: start: 20080514
  2. T4 [Concomitant]
     Dosage: UNK
  3. PANTOPRAZOL [Concomitant]
     Dosage: UNK
  4. PERINDOPRIL [Concomitant]
     Dosage: UNK
  5. AZACORTID [Concomitant]
     Dosage: UNK
  6. ACETAMINOPHEN [Concomitant]
     Dosage: UNK
  7. DICLOFENAC [Concomitant]
     Dosage: UNK
  8. CLONAZEPAM [Concomitant]
     Dosage: UNK

REACTIONS (6)
  - Fall [Unknown]
  - Rheumatoid arthritis [Not Recovered/Not Resolved]
  - Arthritis [Unknown]
  - Joint injury [Recovered/Resolved]
  - Laboratory test abnormal [Not Recovered/Not Resolved]
  - Drug ineffective [Not Recovered/Not Resolved]
